FAERS Safety Report 6438098-1 (Version None)
Quarter: 2009Q4

REPORT INFORMATION
  Report Type: 
  Country: None (occurrence: None)
  Receive Date: 20091112
  Receipt Date: 20091105
  Transmission Date: 20100525
  Serious: Yes (Other)
  Sender: FDA-Public Use
  Company Number: JP-BRISTOL-MYERS SQUIBB COMPANY-14829204

PATIENT
  Age: 80 Year
  Sex: Male
  Weight: 49 kg

DRUGS (8)
  1. ERBITUX [Suspect]
     Indication: COLON CANCER
     Dosage: 28JUL09-28JUL09:600MG 13AUG09-01OCT09:400MG 24SEP2009:7TH INF,01OCT:8TH AND LAST INF
     Route: 042
     Dates: start: 20090728, end: 20090728
  2. POLARAMINE [Concomitant]
     Indication: PREMEDICATION
     Route: 042
     Dates: start: 20090728, end: 20091001
  3. DEXART [Concomitant]
     Indication: PREMEDICATION
     Route: 042
     Dates: start: 20090728, end: 20091001
  4. SOLDEM 3A [Concomitant]
     Route: 042
     Dates: start: 20090730
  5. ASCORBIC ACID [Concomitant]
     Route: 042
     Dates: start: 20090730
  6. PANTHENOL [Concomitant]
     Route: 042
     Dates: start: 20090730
  7. STRONGER NEO-MINOPHAGEN C [Concomitant]
     Route: 042
     Dates: start: 20090730
  8. SANDOSTATIN [Concomitant]
     Route: 058
     Dates: start: 20090730

REACTIONS (2)
  - DERMATITIS ACNEIFORM [None]
  - DYSPHAGIA [None]
